FAERS Safety Report 23546391 (Version 1)
Quarter: 2024Q1

REPORT INFORMATION
  Report Type: Report from Study
  Country: CA (occurrence: None)
  Receive Date: 20240220
  Receipt Date: 20240220
  Transmission Date: 20240409
  Serious: Yes (Death)
  Sender: FDA-Public Use
  Company Number: 2024A040426

PATIENT
  Sex: Female

DRUGS (10)
  1. FASENRA [Suspect]
     Active Substance: BENRALIZUMAB
     Indication: Asthma
     Route: 058
     Dates: start: 20220913, end: 20231220
  2. SPIRIVA RESPIMAT [Concomitant]
     Active Substance: TIOTROPIUM BROMIDE
  3. ALVESCO [Concomitant]
     Active Substance: CICLESONIDE
  4. ZENHALE [Concomitant]
     Active Substance: FORMOTEROL FUMARATE\MOMETASONE FUROATE
  5. ATROVENT [Concomitant]
     Active Substance: IPRATROPIUM BROMIDE
  6. VENTOLIN [Concomitant]
     Active Substance: ALBUTEROL SULFATE
  7. NUCALA [Concomitant]
     Active Substance: MEPOLIZUMAB
  8. REACTIN [Concomitant]
  9. SINGULAIR [Concomitant]
     Active Substance: MONTELUKAST SODIUM
  10. DEXAMETHASONE [Concomitant]
     Active Substance: DEXAMETHASONE
     Dates: start: 202202

REACTIONS (1)
  - Death [Fatal]
